FAERS Safety Report 23812970 (Version 1)
Quarter: 2024Q2

REPORT INFORMATION
  Report Type: Spontaneous
  Country: FR (occurrence: FR)
  Receive Date: 20240503
  Receipt Date: 20240503
  Transmission Date: 20240715
  Serious: Yes (Hospitalization, Other)
  Sender: FDA-Public Use
  Company Number: FR-AFSSAPS-MA2024000462

PATIENT
  Age: 70 Year
  Sex: Male

DRUGS (3)
  1. VORICONAZOLE [Suspect]
     Active Substance: VORICONAZOLE
     Indication: Bronchopulmonary aspergillosis
     Dosage: UNK
     Route: 048
     Dates: end: 20230614
  2. COLISTIN [Concomitant]
     Active Substance: COLISTIN
     Indication: Bronchopulmonary aspergillosis
     Dosage: UNK UNK, 3 TIMES A DAY
     Route: 065
     Dates: start: 20230614, end: 20230619
  3. DAPTOMYCIN [Concomitant]
     Active Substance: DAPTOMYCIN
     Indication: Bronchopulmonary aspergillosis
     Dosage: 650 MILLIGRAM, ONCE A DAY
     Route: 065
     Dates: start: 20230614, end: 20230619

REACTIONS (1)
  - Febrile neutropenia [Recovered/Resolved]

NARRATIVE: CASE EVENT DATE: 20230614
